FAERS Safety Report 5535855-0 (Version None)
Quarter: 2007Q4

REPORT INFORMATION
  Report Type: 
  Country: None (occurrence: None)
  Receive Date: 20071206
  Receipt Date: 20071126
  Transmission Date: 20080405
  Serious: Yes (Hospitalization)
  Sender: FDA-Public Use
  Company Number: US-JNJFOC-20071109764

PATIENT
  Sex: Female
  Weight: 97.52 kg

DRUGS (1)
  1. DURAGESIC-100 [Suspect]
     Indication: PAIN
     Dosage: 1X 100 UG/HR PATCH PLUS 1X 25 UG/HR PATCH
     Route: 062

REACTIONS (2)
  - APPLICATION SITE ERYTHEMA [None]
  - THROMBOSIS [None]
